FAERS Safety Report 15920226 (Version 2)
Quarter: 2019Q3

REPORT INFORMATION
  Report Type: Spontaneous
  Country: US (occurrence: US)
  Receive Date: 20190205
  Receipt Date: 20190819
  Transmission Date: 20191004
  Serious: No
  Sender: FDA-Public Use
  Company Number: US-PFIZER INC-2019051871

PATIENT
  Age: 12 Year
  Sex: Male

DRUGS (2)
  1. GENOTROPIN [Suspect]
     Active Substance: SOMATROPIN
     Indication: SEPTO-OPTIC DYSPLASIA
     Dosage: 1.2 MG, UNK [6 DAYS A WEEK]
  2. GENOTROPIN [Suspect]
     Active Substance: SOMATROPIN
     Dosage: 1.4 MG, UNK

REACTIONS (6)
  - Off label use [Unknown]
  - Blood urea nitrogen/creatinine ratio increased [Unknown]
  - Blood glucose increased [Unknown]
  - Blood albumin decreased [Unknown]
  - Product use in unapproved indication [Unknown]
  - Thyroxine free decreased [Unknown]

NARRATIVE: CASE EVENT DATE: 20180830
